FAERS Safety Report 22789377 (Version 5)
Quarter: 2024Q1

REPORT INFORMATION
  Report Type: Spontaneous
  Country: US (occurrence: US)
  Receive Date: 20230804
  Receipt Date: 20240125
  Transmission Date: 20240410
  Serious: Yes (Other)
  Sender: FDA-Public Use
  Company Number: US-PFIZER INC-PV202300040083

PATIENT
  Age: 86 Year
  Sex: Female
  Weight: 59.9 kg

DRUGS (3)
  1. IBRANCE [Suspect]
     Active Substance: PALBOCICLIB
     Indication: Breast cancer metastatic
     Dosage: UNK
     Dates: start: 202209
  2. IBRANCE [Suspect]
     Active Substance: PALBOCICLIB
     Dosage: TAKE ONE TAB PO (PER ORAL) DAILY X 3 WEEKS FOLLOWED BY ONE WEEK OFF
     Route: 048
     Dates: start: 20230314
  3. LETROZOLE [Concomitant]
     Active Substance: LETROZOLE
     Dosage: 2.5 MG P.O. (ORAL) DAILY
     Route: 048
     Dates: start: 202209

REACTIONS (1)
  - Tooth extraction [Unknown]
